FAERS Safety Report 5401501-X (Version None)
Quarter: 2007Q3

REPORT INFORMATION
  Report Type: 
  Country: None (occurrence: None)
  Receive Date: 20070731
  Receipt Date: 20070308
  Transmission Date: 20080115
  Serious: No
  Sender: FDA-Public Use
  Company Number: A0642445A

PATIENT
  Age: 84 Year
  Sex: Female

DRUGS (6)
  1. DYAZIDE [Suspect]
     Indication: HYPERTENSION
     Dosage: 1CAP PER DAY
     Route: 048
  2. TENORMIN [Concomitant]
     Dosage: 100MG PER DAY
  3. NORVASC [Concomitant]
     Dosage: 2.5MG PER DAY
  4. NEXIUM [Concomitant]
     Dosage: 10MG PER DAY
  5. ASPIRIN [Concomitant]
  6. LIPITOR [Concomitant]
     Dosage: 20MG PER DAY

REACTIONS (1)
  - CYSTITIS NONINFECTIVE [None]
